FAERS Safety Report 15287624 (Version 2)
Quarter: 2018Q3

REPORT INFORMATION
  Report Type: Spontaneous
  Country: US (occurrence: US)
  Receive Date: 20180817
  Receipt Date: 20180817
  Transmission Date: 20181010
  Serious: No
  Sender: FDA-Public Use
  Company Number: US-JNJFOC-20180727845

PATIENT
  Sex: Female
  Weight: 80.74 kg

DRUGS (1)
  1. TYLENOL EXTRA STRENGTH [Suspect]
     Active Substance: ACETAMINOPHEN
     Indication: ARTHRITIS
     Dosage: 1 CAPLET EVERY 6 HOURS
     Route: 048
     Dates: start: 20180719, end: 20180720

REACTIONS (2)
  - Incorrect dose administered [Unknown]
  - Product outer packaging issue [Unknown]
